FAERS Safety Report 4489791-1 (Version None)
Quarter: 2004Q4

REPORT INFORMATION
  Report Type: 
  Country: None (occurrence: None)
  Receive Date: 20041026
  Receipt Date: 20041007
  Transmission Date: 20050328
  Serious: Yes (Death)
  Sender: FDA-Public Use
  Company Number: EWC041040908

PATIENT
  Sex: Female
  Weight: 77 kg

DRUGS (2)
  1. GEMCITABINE HYDROCHLORIDE-IV (GEMCITABINE) [Suspect]
     Indication: NON-SMALL CELL LUNG CANCER
     Dosage: 2362.5 MG/2 OTHER
     Dates: start: 20041004
  2. CISPLATIN [Suspect]
     Indication: NON-SMALL CELL LUNG CANCER
     Dosage: 151.2 MG/2 OTHER
     Dates: start: 20041004

REACTIONS (3)
  - DISTURBANCE IN ATTENTION [None]
  - INJURY [None]
  - ROAD TRAFFIC ACCIDENT [None]
